FAERS Safety Report 5815509-3 (Version None)
Quarter: 2008Q3

REPORT INFORMATION
  Report Type: 
  Country: None (occurrence: None)
  Receive Date: 20080715
  Receipt Date: 20080707
  Transmission Date: 20090109
  Serious: Yes (Death, Hospitalization)
  Sender: FDA-Public Use
  Company Number: 114-21880-08061046

PATIENT
  Age: 70 Year
  Sex: Male

DRUGS (2)
  1. REVLIMID [Suspect]
     Indication: MULTIPLE MYELOMA
     Dosage: 15 MG, EVERY OTHER DAY, ORAL, 10 MG, EVERY OTHER DAY, ORAL
     Route: 048
     Dates: start: 20080603
  2. REVLIMID [Suspect]
     Indication: MULTIPLE MYELOMA
     Dosage: 15 MG, EVERY OTHER DAY, ORAL, 10 MG, EVERY OTHER DAY, ORAL
     Route: 048
     Dates: start: 20080612

REACTIONS (6)
  - BLOOD CREATININE INCREASED [None]
  - DISEASE PROGRESSION [None]
  - HAEMOGLOBIN DECREASED [None]
  - MULTIPLE MYELOMA [None]
  - NEUTROPENIA [None]
  - THROMBOCYTOPENIA [None]
